FAERS Safety Report 4428011-0 (Version None)
Quarter: 2004Q3

REPORT INFORMATION
  Report Type: 
  Country: None (occurrence: None)
  Receive Date: 20040813
  Receipt Date: 20040801
  Transmission Date: 20050211
  Serious: Yes (Other)
  Sender: FDA-Public Use
  Company Number: 2004052136

PATIENT
  Age: 54 Year
  Sex: Male
  Weight: 90.7194 kg

DRUGS (3)
  1. NARDIL [Suspect]
     Indication: ANXIETY
     Dosage: 90 MG (1 IN 1 D), ORAL
     Route: 048
     Dates: end: 20040701
  2. NARDIL [Suspect]
     Indication: DEPRESSION
     Dosage: 90 MG (1 IN 1 D), ORAL
     Route: 048
     Dates: end: 20040701
  3. NARDIL [Suspect]
     Indication: SOCIAL PHOBIA
     Dosage: 90 MG (1 IN 1 D), ORAL
     Route: 048
     Dates: end: 20040701

REACTIONS (3)
  - SELF-MEDICATION [None]
  - TREATMENT NONCOMPLIANCE [None]
  - UPPER LIMB FRACTURE [None]
